FAERS Safety Report 8620245-4 (Version None)
Quarter: 2012Q3

REPORT INFORMATION
  Report Type: 
  Country: None (occurrence: None)
  Receive Date: 20120824
  Receipt Date: 20120822
  Transmission Date: 20120928
  Serious: No
  Sender: FDA-Public Use
  Company Number: US-BAYER-2012-087231

PATIENT
  Sex: Female
  Weight: 68.027 kg

DRUGS (1)
  1. BETASERON [Suspect]
     Dosage: 0.3 MG, UNK
     Route: 058

REACTIONS (4)
  - PARAESTHESIA [None]
  - MUSCLE SPASMS [None]
  - RESTLESSNESS [None]
  - PAIN IN EXTREMITY [None]
